FAERS Safety Report 8473786-7 (Version None)
Quarter: 2012Q2

REPORT INFORMATION
  Report Type: 
  Country: None (occurrence: None)
  Receive Date: 20120628
  Receipt Date: 20120614
  Transmission Date: 20120825
  Serious: Yes (Other)
  Sender: FDA-Public Use
  Company Number: US-MYLANLABS-2011S1023399

PATIENT
  Age: 71 Year
  Sex: Male

DRUGS (4)
  1. CLOZAPINE [Suspect]
     Indication: HALLUCINATION
     Route: 048
     Dates: end: 20120501
  2. EXELON [Concomitant]
  3. REMERON [Concomitant]
  4. CLOZAPINE [Suspect]
     Route: 048
     Dates: start: 20120527

REACTIONS (1)
  - GRANULOCYTOPENIA [None]
